FAERS Safety Report 10258490 (Version 1)
Quarter: 2014Q2

REPORT INFORMATION
  Report Type: Spontaneous
  Country: US (occurrence: None)
  Receive Date: 20140623
  Receipt Date: 20140623
  Transmission Date: 20141212
  Serious: Yes (Hospitalization)
  Sender: FDA-Public Use
  Company Number: UNT-2014-002263

PATIENT
  Age: 72 Year
  Sex: Female
  Weight: 74.4 kg

DRUGS (2)
  1. REMODULIN [Suspect]
     Indication: PULMONARY ARTERIAL HYPERTENSION
     Dosage: 0.094 UG/KG, CONTINUING INTRAVENOUS
     Route: 042
     Dates: start: 20130220
  2. ADCIRCA (TADALAFIL) [Concomitant]

REACTIONS (1)
  - Fluid overload [None]
